FAERS Safety Report 12810479 (Version 1)
Quarter: 2016Q4

REPORT INFORMATION
  Report Type: Report from Study
  Country: US (occurrence: US)
  Receive Date: 20161005
  Receipt Date: 20161005
  Transmission Date: 20170207
  Serious: Yes (Other)
  Sender: FDA-Public Use
  Company Number: US-MALLINCKRODT-T201604616

PATIENT
  Age: 86 Year
  Sex: Male

DRUGS (3)
  1. REPOSITORY CORTICOTROPIN INJECTION [Suspect]
     Active Substance: CORTICOTROPIN
     Indication: PROTEINURIA
     Dosage: 40 UNITS TWICE WKLY (MON/THURS)
     Route: 058
     Dates: start: 20160225
  2. REPOSITORY CORTICOTROPIN INJECTION [Suspect]
     Active Substance: CORTICOTROPIN
     Indication: NEPHROTIC SYNDROME
  3. LASIX [Suspect]
     Active Substance: FUROSEMIDE
     Indication: SWELLING
     Dosage: UNKNOWN DOSE/FREQUENCY
     Route: 065

REACTIONS (9)
  - Fall [Recovered/Resolved]
  - Onychomadesis [Not Recovered/Not Resolved]
  - Dehydration [Recovering/Resolving]
  - Hypovitaminosis [Unknown]
  - Loss of consciousness [Recovering/Resolving]
  - Foot fracture [Not Recovered/Not Resolved]
  - Drug effect incomplete [Not Recovered/Not Resolved]
  - Depression [Recovering/Resolving]
  - Wound [Not Recovered/Not Resolved]

NARRATIVE: CASE EVENT DATE: 2016
